FAERS Safety Report 18856134 (Version 1)
Quarter: 2021Q1

REPORT INFORMATION
  Report Type: Spontaneous
  Country: GB (occurrence: GB)
  Receive Date: 20210206
  Receipt Date: 20210206
  Transmission Date: 20210420
  Serious: Yes (Other)
  Sender: FDA-Public Use
  Company Number: GB-009507513-2102GBR001126

PATIENT
  Age: 20 Year
  Sex: Female
  Weight: 70 kg

DRUGS (1)
  1. MIRTAZAPINE. [Suspect]
     Active Substance: MIRTAZAPINE
     Indication: ANXIETY
     Dosage: 15 MILLIGRAM
     Route: 048
     Dates: start: 20200930

REACTIONS (3)
  - Weight loss poor [Not Recovered/Not Resolved]
  - Orgasm abnormal [Unknown]
  - Libido increased [Recovered/Resolved with Sequelae]

NARRATIVE: CASE EVENT DATE: 20201001
